FAERS Safety Report 15308113 (Version 1)
Quarter: 2018Q3

REPORT INFORMATION
  Report Type: Spontaneous
  Country: US (occurrence: US)
  Receive Date: 20180822
  Receipt Date: 20180822
  Transmission Date: 20181010
  Serious: Yes (Other)
  Sender: FDA-Public Use
  Company Number: US-AMGEN-USASP2018115078

PATIENT
  Sex: Male

DRUGS (1)
  1. ENBREL [Suspect]
     Active Substance: ETANERCEPT
     Indication: RHEUMATOID ARTHRITIS
     Dosage: UNK UNK, Q2WK
     Route: 065

REACTIONS (6)
  - Surgery [Unknown]
  - Diarrhoea [Recovered/Resolved]
  - Malaise [Unknown]
  - Off label use [Unknown]
  - Pharyngitis [Recovered/Resolved]
  - Knee arthroplasty [Unknown]
